APPROVED DRUG PRODUCT: SODIUM POLYSTYRENE SULFONATE
Active Ingredient: SODIUM POLYSTYRENE SULFONATE
Strength: 454GM/BOT
Dosage Form/Route: POWDER;ORAL, RECTAL
Application: A089910 | Product #001 | TE Code: AA
Applicant: CMP PHARMA INC
Approved: Jan 19, 1989 | RLD: No | RS: No | Type: RX